FAERS Safety Report 21929529 (Version 1)
Quarter: 2023Q1

REPORT INFORMATION
  Report Type: Spontaneous
  Country: US (occurrence: US)
  Receive Date: 20230131
  Receipt Date: 20230131
  Transmission Date: 20230417
  Serious: No
  Sender: FDA-Public Use
  Company Number: US-UCBSA-2022057011

PATIENT
  Age: 5 Week
  Sex: Female
  Weight: 4.3 kg

DRUGS (1)
  1. LEVETIRACETAM [Suspect]
     Active Substance: LEVETIRACETAM
     Indication: Clonus
     Dosage: UNK
     Route: 042

REACTIONS (1)
  - Product use in unapproved indication [Unknown]
